FAERS Safety Report 9313408 (Version 2)
Quarter: 2013Q2

REPORT INFORMATION
  Report Type: Spontaneous
  Country: JP (occurrence: JP)
  Receive Date: 20130528
  Receipt Date: 20130531
  Transmission Date: 20140414
  Serious: Yes (Other)
  Sender: FDA-Public Use
  Company Number: JP-ASTRAZENECA-2013SE36355

PATIENT
  Age: 65 Year
  Sex: 0

DRUGS (2)
  1. SEROQUEL [Suspect]
     Route: 048
  2. RISPERDAL [Suspect]
     Route: 048

REACTIONS (1)
  - Parkinson^s disease [Unknown]
